FAERS Safety Report 6960155-1 (Version None)
Quarter: 2010Q3

REPORT INFORMATION
  Report Type: 
  Country: None (occurrence: None)
  Receive Date: 20100901
  Receipt Date: 20100823
  Transmission Date: 20110219
  Serious: Yes (Hospitalization)
  Sender: FDA-Public Use
  Company Number: US-SANOFI-AVENTIS-2010SA040687

PATIENT
  Age: 42 Year
  Sex: Male
  Weight: 72 kg

DRUGS (5)
  1. ELITEK [Suspect]
     Route: 042
     Dates: start: 20100701, end: 20100701
  2. ALLOPURINOL [Concomitant]
     Route: 065
     Dates: start: 20100630, end: 20100702
  3. BACTRIM DS [Concomitant]
     Indication: INFECTION
     Route: 048
     Dates: start: 20100617, end: 20100621
  4. HYDROXYUREA [Concomitant]
     Route: 048
     Dates: start: 20100630, end: 20100701
  5. CIPROFLOXACIN [Concomitant]
     Indication: INFECTION
     Dates: start: 20100617, end: 20100624

REACTIONS (5)
  - PAIN [None]
  - PRURITUS [None]
  - RASH VESICULAR [None]
  - SKIN EXFOLIATION [None]
  - STEVENS-JOHNSON SYNDROME [None]
